FAERS Safety Report 14928623 (Version 3)
Quarter: 2018Q4

REPORT INFORMATION
  Report Type: Spontaneous
  Country: DE (occurrence: DE)
  Receive Date: 20180523
  Receipt Date: 20181228
  Transmission Date: 20190204
  Serious: Yes (Other)
  Sender: FDA-Public Use
  Company Number: DE-MYLANLABS-2018M1033429

PATIENT
  Age: 46 Year
  Sex: Male

DRUGS (12)
  1. VINCRISTINE [Concomitant]
     Active Substance: VINCRISTINE
     Indication: PLASMA CELL MYELOMA
     Dosage: 1.6 MG, QD (4 X 0.4 MG)
     Route: 042
  2. ADRIAMYCIN [Concomitant]
     Active Substance: DOXORUBICIN HYDROCHLORIDE
     Dosage: 9 MILLIGRAM/SQ. METER, CYCLE (4 X 9 MG/M2 (VAD REGIMEN))
     Route: 042
  3. MELPHALAN. [Suspect]
     Active Substance: MELPHALAN
     Dosage: 15 MG, QD (1 X 15 MG/M2)
     Route: 042
  4. ENDOXAN                            /00021102/ [Suspect]
     Active Substance: CYCLOPHOSPHAMIDE
     Indication: PLASMA CELL MYELOMA
     Dosage: 60 MILLIGRAM/KILOGRAM, QH, ON DAY -3 AND -2 (IMC REGIMEN)
     Route: 041
  5. DEXAMETHASONE. [Concomitant]
     Active Substance: DEXAMETHASONE
     Indication: PLASMA CELL MYELOMA
     Dosage: 40 MG, UNK (8X40 MG (VAD REGIMEN), 2 CYCLICAL)
     Route: 048
  6. VINCRISTINE [Concomitant]
     Active Substance: VINCRISTINE
     Dosage: (4 X 0.4 MG (VAD REGIMEN) )0.4 MILLIGRAM, CYCLE
     Route: 042
  7. ADRIAMYCIN [Concomitant]
     Active Substance: DOXORUBICIN HYDROCHLORIDE
     Indication: PLASMA CELL MYELOMA
     Dosage: 36 MG/M2, QD (4 X 9 MG/M2)
     Route: 042
  8. IDARUBICIN [Suspect]
     Active Substance: IDARUBICIN
     Indication: PLASMA CELL MYELOMA
     Dosage: ON DAYS -13,-12 AND -11 (IMC REGIMEN)
     Route: 041
  9. MESNA. [Concomitant]
     Active Substance: MESNA
     Indication: PRODUCT USED FOR UNKNOWN INDICATION
     Dosage: 60 MG/KG, UNK (ON DAY -3 AND -2 (ALONG WITH IMC REGIMEN)
     Route: 065
  10. MELPHALAN. [Suspect]
     Active Substance: MELPHALAN
     Indication: PRODUCT USED FOR UNKNOWN INDICATION
     Dosage: 200 MG/M2, CYCLE
     Route: 042
  11. MELPHALAN. [Suspect]
     Active Substance: MELPHALAN
     Dosage: 100 MILLIGRAM/SQ. METER, QH, ON DAYS -5 AND -4 (IMC REGIMEN)
     Route: 041
  12. PREDNISONE. [Concomitant]
     Active Substance: PREDNISONE
     Indication: PLASMA CELL MYELOMA
     Dosage: 60 MG/M2, QID
     Route: 048

REACTIONS (3)
  - Mucosal inflammation [Unknown]
  - Pyrexia [Unknown]
  - Haematotoxicity [Unknown]
